FAERS Safety Report 8153433-4 (Version None)
Quarter: 2012Q1

REPORT INFORMATION
  Report Type: 
  Country: None (occurrence: None)
  Receive Date: 20120221
  Receipt Date: 20120207
  Transmission Date: 20120608
  Serious: Yes (Hospitalization, Other)
  Sender: FDA-Public Use
  Company Number: US-ROCHE-1007566

PATIENT
  Sex: Female
  Weight: 149 kg

DRUGS (2)
  1. HERCEPTIN [Suspect]
     Indication: BREAST CANCER
     Dosage: OVER 90 MIN ON DAY 1, LAST ADMINISTERED DATE : 9 SEPT 2011
     Route: 042
     Dates: start: 20081106
  2. AVASTIN [Suspect]
     Indication: BREAST CANCER
     Dosage: OVER 30-60 MIN ON DAY 1, LAST ADMINISTERED DATE :19/AUG/2011
     Route: 042
     Dates: start: 20081106

REACTIONS (3)
  - SKIN ULCER [None]
  - LUNG INFECTION [None]
  - SKIN INFECTION [None]
